FAERS Safety Report 7952090-7 (Version None)
Quarter: 2011Q4

REPORT INFORMATION
  Report Type: 
  Country: None (occurrence: None)
  Receive Date: 20111201
  Receipt Date: 20111124
  Transmission Date: 20120403
  Serious: Yes (Other)
  Sender: FDA-Public Use
  Company Number: PHHY2011CA96208

PATIENT
  Sex: Female

DRUGS (1)
  1. ZOLEDRONOC ACID [Suspect]
     Route: 042
     Dates: start: 20101101

REACTIONS (4)
  - POOR VENOUS ACCESS [None]
  - HYPOKINESIA [None]
  - FALL [None]
  - SPINAL COMPRESSION FRACTURE [None]
